FAERS Safety Report 8916299 (Version 2)
Quarter: 2012Q4

REPORT INFORMATION
  Report Type: 
  Country: TR (occurrence: TR)
  Receive Date: 20121120
  Receipt Date: 20121129
  Transmission Date: 20130627
  Serious: Yes (Hospitalization)
  Sender: FDA-Public Use
  Company Number: PHHY2012TR104949

PATIENT
  Age: 68 Year
  Sex: Female

DRUGS (1)
  1. ANASTROZOLE [Suspect]
     Dosage: 1 mg, QD

REACTIONS (8)
  - Recall phenomenon [Recovered/Resolved]
  - Pruritus [Recovered/Resolved]
  - Hyperaemia [Recovered/Resolved]
  - Papule [Recovered/Resolved]
  - Erythema [Recovered/Resolved]
  - Skin lesion [Recovered/Resolved]
  - Skin plaque [Recovered/Resolved]
  - Skin hyperpigmentation [Recovered/Resolved]
